FAERS Safety Report 21762012 (Version 2)
Quarter: 2023Q2

REPORT INFORMATION
  Report Type: Spontaneous
  Country: US (occurrence: US)
  Receive Date: 20221221
  Receipt Date: 20230629
  Transmission Date: 20230722
  Serious: No
  Sender: FDA-Public Use
  Company Number: US-SA-SAC20221220000261

PATIENT
  Sex: Female

DRUGS (6)
  1. DUPIXENT [Suspect]
     Active Substance: DUPILUMAB
     Indication: Dermatitis atopic
     Dosage: 300 MG, QOW
     Route: 058
     Dates: start: 20220816
  2. EUCRISA [Concomitant]
     Active Substance: CRISABOROLE
  3. SERTRALINE [Concomitant]
     Active Substance: SERTRALINE HYDROCHLORIDE
  4. TACROLIMUS [Concomitant]
     Active Substance: TACROLIMUS
  5. HYDROCORTISONE [Concomitant]
     Active Substance: HYDROCORTISONE
  6. HYDROCORTISONE\NEOMYCIN SULFATE [Concomitant]
     Active Substance: HYDROCORTISONE\NEOMYCIN SULFATE

REACTIONS (6)
  - Discomfort [Unknown]
  - Sleep disorder [Unknown]
  - Injection site reaction [Unknown]
  - Dermatitis atopic [Unknown]
  - Rash [Unknown]
  - Drug ineffective [Unknown]

NARRATIVE: CASE EVENT DATE: 20220101
